FAERS Safety Report 8375292-7 (Version None)
Quarter: 2012Q2

REPORT INFORMATION
  Report Type: 
  Country: None (occurrence: None)
  Receive Date: 20120522
  Receipt Date: 20120518
  Transmission Date: 20120825
  Serious: No
  Sender: FDA-Public Use
  Company Number: US-BIOGENIDEC-2011BI037679

PATIENT
  Age: 39 Year
  Sex: Female

DRUGS (1)
  1. TYSABRI [Suspect]
     Indication: MULTIPLE SCLEROSIS
     Route: 042
     Dates: start: 20110912

REACTIONS (4)
  - MUSCULOSKELETAL DISORDER [None]
  - GAIT DISTURBANCE [None]
  - COORDINATION ABNORMAL [None]
  - FATIGUE [None]
